FAERS Safety Report 8777591 (Version 2)
Quarter: 2012Q4

REPORT INFORMATION
  Report Type: 
  Country: US (occurrence: US)
  Receive Date: 20120911
  Receipt Date: 20120911
  Transmission Date: 20130627
  Serious: No
  Sender: FDA-Public Use
  Company Number: PHEH2012US016940

PATIENT
  Age: 48 Year
  Sex: Female
  Weight: 67.12 kg

DRUGS (1)
  1. COMBIPATCH [Suspect]
     Dosage: 05 / 140 1 per week
     Dates: start: 20120315, end: 20120820

REACTIONS (2)
  - Erythema [Recovered/Resolved]
  - Product adhesion issue [Recovered/Resolved]
